FAERS Safety Report 22905117 (Version 3)
Quarter: 2023Q4

REPORT INFORMATION
  Report Type: Spontaneous
  Country: US (occurrence: US)
  Receive Date: 20230905
  Receipt Date: 20231023
  Transmission Date: 20240110
  Serious: No
  Sender: FDA-Public Use
  Company Number: US-ELI_LILLY_AND_COMPANY-US202309000425

PATIENT
  Sex: Female

DRUGS (6)
  1. TRULICITY [Suspect]
     Active Substance: DULAGLUTIDE
     Indication: Metabolic disorder
     Dosage: 0.75 MG, UNKNOWN
     Route: 058
     Dates: start: 202308
  2. TRULICITY [Suspect]
     Active Substance: DULAGLUTIDE
     Indication: Metabolic disorder
     Dosage: 0.75 MG, UNKNOWN
     Route: 058
     Dates: start: 202308
  3. TRULICITY [Suspect]
     Active Substance: DULAGLUTIDE
     Dosage: 0.75 MG, UNKNOWN
     Route: 065
  4. TRULICITY [Suspect]
     Active Substance: DULAGLUTIDE
     Dosage: 0.75 MG, UNKNOWN
     Route: 065
  5. TRULICITY [Suspect]
     Active Substance: DULAGLUTIDE
     Indication: Metabolic disorder
     Dosage: 1.5 MG, UNKNOWN
     Route: 065
  6. TRULICITY [Suspect]
     Active Substance: DULAGLUTIDE
     Indication: Weight decreased

REACTIONS (5)
  - Off label use [Unknown]
  - Tinnitus [Unknown]
  - Injection site pain [Unknown]
  - Eructation [Not Recovered/Not Resolved]
  - Dyspepsia [Not Recovered/Not Resolved]
